FAERS Safety Report 4475254-6 (Version None)
Quarter: 2004Q4

REPORT INFORMATION
  Report Type: 
  Country: None (occurrence: None)
  Receive Date: 20041012
  Receipt Date: 20040927
  Transmission Date: 20050328
  Serious: Yes (Other)
  Sender: FDA-Public Use
  Company Number: CHPA2004US03549

PATIENT
  Age: 36 Year
  Sex: Female
  Weight: 54.4 kg

DRUGS (3)
  1. NICOTINE [Suspect]
     Indication: SMOKING CESSATION THERAPY
     Dosage: 14 MG, QD, TRANSDERMAL
     Route: 062
     Dates: start: 20040919, end: 20040927
  2. ZOLOFT [Concomitant]
  3. PREDNISONE [Concomitant]

REACTIONS (9)
  - ABNORMAL BEHAVIOUR [None]
  - DISTURBANCE IN ATTENTION [None]
  - DRUG WITHDRAWAL SYNDROME [None]
  - FEELING ABNORMAL [None]
  - HEADACHE [None]
  - MEDICATION ERROR [None]
  - NAUSEA [None]
  - NICOTINE DEPENDENCE [None]
  - TREMOR [None]
